FAERS Safety Report 5121413-9 (Version None)
Quarter: 2006Q4

REPORT INFORMATION
  Report Type: 
  Country: None (occurrence: None)
  Receive Date: 20061002
  Receipt Date: 20060922
  Transmission Date: 20070319
  Serious: Yes (Death)
  Sender: FDA-Public Use
  Company Number: 056-C5013-06090917

PATIENT
  Age: 49 Year
  Sex: Female

DRUGS (2)
  1. CC-5013         (LENALIDOMIDE) [Suspect]
     Indication: MULTIPLE MYELOMA
     Dosage: 25 MG, 1 IN 1 D, ORAL
     Route: 048
     Dates: end: 20060915
  2. DEXAMETHASOL [Concomitant]

REACTIONS (1)
  - DEATH [None]
